FAERS Safety Report 7789520-X (Version None)
Quarter: 2011Q3

REPORT INFORMATION
  Report Type: 
  Country: None (occurrence: None)
  Receive Date: 20110930
  Receipt Date: 20110927
  Transmission Date: 20111222
  Serious: Yes (Hospitalization)
  Sender: FDA-Public Use
  Company Number: US-ELI_LILLY_AND_COMPANY-US201109007919

PATIENT
  Age: 57 Year
  Sex: Female
  Weight: 45.1 kg

DRUGS (2)
  1. PEMETREXED [Suspect]
     Indication: CERVIX CARCINOMA
     Dosage: 66 MG, DAY 1 EVERY 21 DAYS
     Route: 042
     Dates: start: 20110706
  2. CISPLATIN [Suspect]
     Indication: CERVIX CARCINOMA
     Dosage: 50 MG/M2, OTHER
     Route: 042
     Dates: start: 20110706

REACTIONS (4)
  - PLATELET COUNT DECREASED [None]
  - DYSPNOEA [None]
  - HAEMOGLOBIN DECREASED [None]
  - GASTRIC HAEMORRHAGE [None]
